FAERS Safety Report 19099166 (Version 2)
Quarter: 2021Q2

REPORT INFORMATION
  Report Type: Spontaneous
  Country: GB (occurrence: GB)
  Receive Date: 20210406
  Receipt Date: 20210628
  Transmission Date: 20210717
  Serious: Yes (Life-Threatening, Hospitalization, Other)
  Sender: FDA-Public Use
  Company Number: IT-SUNOVION-2021SUN001243

PATIENT
  Age: 23 Year
  Sex: Male

DRUGS (1)
  1. LURASIDONE HYDROCHLORIDE. [Suspect]
     Active Substance: LURASIDONE HYDROCHLORIDE
     Indication: PRODUCT USED FOR UNKNOWN INDICATION
     Dosage: UNK
     Route: 048
     Dates: start: 20180409

REACTIONS (13)
  - Fractured sacrum [Unknown]
  - Osteonecrosis [Unknown]
  - Anal incontinence [Unknown]
  - Foot fracture [Unknown]
  - Lower limb fracture [Unknown]
  - Multiple injuries [Unknown]
  - Suicidal behaviour [Unknown]
  - Limb injury [Unknown]
  - Limb amputation [Unknown]
  - Urinary incontinence [Unknown]
  - Hallucination, auditory [Unknown]
  - Coma [Unknown]
  - Spinal cord injury [Unknown]

NARRATIVE: CASE EVENT DATE: 20190328
